FAERS Safety Report 24192395 (Version 2)
Quarter: 2024Q3

REPORT INFORMATION
  Report Type: Other
  Country: US (occurrence: US)
  Receive Date: 20240809
  Receipt Date: 20240823
  Transmission Date: 20241017
  Serious: Yes (Hospitalization)
  Sender: ALVOGEN
  Company Number: US-ALVOGEN-2024095243

PATIENT
  Age: 79 Year
  Sex: Female

DRUGS (1)
  1. FLECAINIDE [Suspect]
     Active Substance: FLECAINIDE
     Indication: Atrial fibrillation
     Dosage: 150 MG TWICE DAILY

REACTIONS (13)
  - Toxicity to various agents [Unknown]
  - Hallucination, visual [Recovered/Resolved]
  - Mental status changes [Recovered/Resolved]
  - Arrhythmia [Recovering/Resolving]
  - Dehydration [Recovering/Resolving]
  - Encephalopathy [Recovering/Resolving]
  - Acute kidney injury [Recovered/Resolved]
  - Ventricular dyskinesia [Recovering/Resolving]
  - Bradycardia [Recovering/Resolving]
  - Electrocardiogram QRS complex prolonged [Recovering/Resolving]
  - Device pacing issue [Recovering/Resolving]
  - Diarrhoea [Recovering/Resolving]
  - Hypotension [Recovering/Resolving]
